FAERS Safety Report 12815129 (Version 2)
Quarter: 2018Q1

REPORT INFORMATION
  Report Type: Report from Study
  Country: US (occurrence: US)
  Receive Date: 20161006
  Receipt Date: 20180216
  Transmission Date: 20180508
  Serious: Yes (Other)
  Sender: FDA-Public Use
  Company Number: US-ROCHE-1837068

PATIENT
  Age: 66 Year
  Sex: Female
  Weight: 93.2 kg

DRUGS (2)
  1. ABT-888 [Suspect]
     Active Substance: VELIPARIB
     Indication: FALLOPIAN TUBE CANCER
     Route: 048
     Dates: start: 20121102
  2. BEVACIZUMAB. [Suspect]
     Active Substance: BEVACIZUMAB
     Indication: FALLOPIAN TUBE CANCER
     Dosage: OVER 30-90 MINUTES ON DAY 1
     Route: 042
     Dates: start: 20121126

REACTIONS (9)
  - Fatigue [Unknown]
  - Hypertension [Unknown]
  - Hyponatraemia [Unknown]
  - Dehydration [Unknown]
  - Platelet count decreased [Unknown]
  - White blood cell count decreased [Unknown]
  - Diarrhoea [Unknown]
  - Syncope [Unknown]
  - Muscular weakness [Unknown]
